FAERS Safety Report 5708378-3 (Version None)
Quarter: 2008Q2

REPORT INFORMATION
  Report Type: 
  Country: None (occurrence: None)
  Receive Date: 20080417
  Receipt Date: 20080411
  Transmission Date: 20081010
  Serious: Yes (Other)
  Sender: FDA-Public Use
  Company Number: IE-ASTRAZENECA-2008GB00722

PATIENT

DRUGS (3)
  1. SEROQUEL [Suspect]
     Dosage: 400 MG
     Route: 048
  2. SEROQUEL [Suspect]
     Dosage: 600 MG
     Route: 048
  3. SEROQUEL [Suspect]
     Dosage: 800 MG
     Route: 048

REACTIONS (3)
  - COLECTOMY [None]
  - DRUG INEFFECTIVE [None]
  - PSYCHIATRIC SYMPTOM [None]
